FAERS Safety Report 9307874 (Version 1)
Quarter: 2013Q2

REPORT INFORMATION
  Report Type: Report from Study
  Country: NL (occurrence: NL)
  Receive Date: 20130524
  Receipt Date: 20130524
  Transmission Date: 20140414
  Serious: Yes (Other)
  Sender: FDA-Public Use
  Company Number: NL-ROCHE-1224692

PATIENT
  Sex: Female

DRUGS (3)
  1. BEVACIZUMAB [Suspect]
     Indication: BREAST CANCER METASTATIC
     Dosage: LAST DOSE PRIOR TO SAE 15/MAR/2013
     Route: 042
     Dates: start: 20130315, end: 20130315
  2. PACLITAXEL [Suspect]
     Indication: BREAST CANCER METASTATIC
     Dosage: LAST DOSE PRIOR TO SAE 22/MAR/2013
     Route: 042
     Dates: start: 20130315
  3. NYSTATIN [Concomitant]
     Route: 065
     Dates: start: 20130326

REACTIONS (4)
  - Stress cardiomyopathy [Unknown]
  - Chronic obstructive pulmonary disease [Unknown]
  - Respiratory failure [Unknown]
  - Lymphangitis [Unknown]
